FAERS Safety Report 19686507 (Version 1)
Quarter: 2021Q3

REPORT INFORMATION
  Report Type: Spontaneous
  Country: FR (occurrence: FR)
  Receive Date: 20210811
  Receipt Date: 20210811
  Transmission Date: 20211014
  Serious: Yes (Hospitalization)
  Sender: FDA-Public Use
  Company Number: FR-MYLANLABS-2021M1049405

PATIENT
  Age: 59 Year
  Sex: Female
  Weight: 60 kg

DRUGS (1)
  1. IBUPROFEN. [Suspect]
     Active Substance: IBUPROFEN
     Indication: PAIN
     Dosage: NON PRECISE
     Route: 065
     Dates: start: 20210107

REACTIONS (1)
  - Pleural effusion [Recovering/Resolving]

NARRATIVE: CASE EVENT DATE: 20210107
